FAERS Safety Report 8558788-4 (Version None)
Quarter: 2012Q3

REPORT INFORMATION
  Report Type: 
  Country: None (occurrence: None)
  Receive Date: 20120801
  Receipt Date: 20120723
  Transmission Date: 20120928
  Serious: Yes (Death)
  Sender: FDA-Public Use
  Company Number: FR-009507513-1207FRA003285

PATIENT

DRUGS (12)
  1. CANCIDAS [Suspect]
     Indication: BRONCHOPULMONARY ASPERGILLOSIS
     Dosage: UNK
     Route: 042
     Dates: start: 20120528, end: 20120530
  2. VFEND [Interacting]
     Dosage: 200 MG, BID
     Route: 048
     Dates: start: 20120526, end: 20120531
  3. VFEND [Interacting]
     Indication: BRONCHOPULMONARY ASPERGILLOSIS
     Dosage: 200 MG, BID
     Route: 042
     Dates: start: 20120514, end: 20120525
  4. VANCOMYCIN [Interacting]
     Dosage: 2250 MG, QD
     Route: 042
     Dates: start: 20120501, end: 20120501
  5. NEUPOGEN [Concomitant]
     Dosage: UNK
     Dates: start: 20120401
  6. GENTAMICIN [Interacting]
     Indication: BRONCHOPULMONARY ASPERGILLOSIS
     Dosage: UNK
     Route: 042
     Dates: start: 20120526, end: 20120530
  7. BACTRIM [Suspect]
     Indication: BRONCHOPULMONARY ASPERGILLOSIS
     Dosage: 1 DF, TIW
     Route: 042
     Dates: start: 20120401
  8. CLAVULANATE POTASSIUM [Suspect]
     Indication: BRONCHOPULMONARY ASPERGILLOSIS
     Dosage: 1 DF, TID
     Route: 042
     Dates: start: 20120528, end: 20120604
  9. CIPROFLAXACIN [Suspect]
     Indication: BRONCHOPULMONARY ASPERGILLOSIS
     Dosage: UNK
     Dates: start: 20120528, end: 20120604
  10. VANCOMYCIN [Interacting]
     Indication: BRONCHOPULMONARY ASPERGILLOSIS
     Dosage: 2000 MG, QD
     Route: 042
     Dates: start: 20120522, end: 20120501
  11. VANCOMYCIN [Interacting]
     Dosage: 1800 MG, QD
     Route: 042
     Dates: start: 20120501, end: 20120603
  12. NEORAL [Interacting]
     Dosage: 100 MG, BID
     Route: 048
     Dates: start: 20120423, end: 20120531

REACTIONS (2)
  - RENAL FAILURE ACUTE [None]
  - OVERDOSE [None]
